FAERS Safety Report 5486059-1 (Version None)
Quarter: 2007Q4

REPORT INFORMATION
  Report Type: 
  Country: None (occurrence: None)
  Receive Date: 20071015
  Receipt Date: 20071004
  Transmission Date: 20080405
  Serious: Yes (Other)
  Sender: FDA-Public Use
  Company Number: US-PFIZER INC-2007083635

PATIENT
  Sex: Male
  Weight: 109.8 kg

DRUGS (8)
  1. EXUBERA [Suspect]
     Indication: DIABETES MELLITUS
     Dates: start: 20070126, end: 20071001
  2. VYTORIN [Concomitant]
  3. COZAAR [Concomitant]
  4. ACETYLSALICYLIC ACID [Concomitant]
  5. LANTUS [Concomitant]
  6. TOPROL-XL [Concomitant]
  7. TRICOR [Concomitant]
  8. GLUCOPHAGE [Concomitant]

REACTIONS (5)
  - CHEST PAIN [None]
  - FALL [None]
  - LUNG DISORDER [None]
  - LYMPHADENOPATHY [None]
  - PULMONARY MASS [None]
